FAERS Safety Report 9392575 (Version 1)
Quarter: 2013Q3

REPORT INFORMATION
  Report Type: Spontaneous
  Country: US (occurrence: None)
  Receive Date: 20130708
  Receipt Date: 20130708
  Transmission Date: 20140515
  Serious: Yes (Life-Threatening, Hospitalization, Disabling, Other)
  Sender: FDA-Public Use
  Company Number: None

PATIENT
  Age: 59 Year
  Sex: Male
  Weight: 112.49 kg

DRUGS (2)
  1. TAXOL [Suspect]
     Indication: BRAIN NEOPLASM MALIGNANT
     Dosage: ONCE EVERY 3 WEEKS IV
     Route: 042
     Dates: start: 20121127, end: 20121228
  2. CARBOPLATIN [Suspect]
     Indication: BRAIN NEOPLASM MALIGNANT
     Dosage: ONCE EVERY 3 WEEKS IV
     Route: 042
     Dates: start: 20121127, end: 20121228

REACTIONS (10)
  - Paralysis [None]
  - Thrombosis [None]
  - Immobile [None]
  - Ulcer haemorrhage [None]
  - Herpes zoster [None]
  - Stress [None]
  - Apparent death [None]
  - Asthenia [None]
  - Weight decreased [None]
  - Aphagia [None]
